FAERS Safety Report 8747801 (Version 2)
Quarter: 2012Q4

REPORT INFORMATION
  Report Type: 
  Country: IT (occurrence: IT)
  Receive Date: 20120827
  Receipt Date: 20121004
  Transmission Date: 20130627
  Serious: Yes (Other)
  Sender: FDA-Public Use
  Company Number: IT-PFIZER INC-2012207070

PATIENT
  Age: 58 Year
  Sex: Male

DRUGS (2)
  1. SUTENT [Suspect]
     Indication: RENAL CELL CARCINOMA
     Dosage: 25 mg, 1x/day
     Route: 048
     Dates: start: 20091022
  2. CARVEDILOL [Concomitant]
     Dosage: 15.625 mg, 1x/day
     Route: 048
     Dates: start: 20100603, end: 20100910

REACTIONS (2)
  - Cardiotoxicity [Recovering/Resolving]
  - Ejection fraction decreased [Recovering/Resolving]
